FAERS Safety Report 11038432 (Version 1)
Quarter: 2015Q2

REPORT INFORMATION
  Report Type: Spontaneous
  Country: FR (occurrence: None)
  Receive Date: 20150414
  Receipt Date: 20150414
  Transmission Date: 20150821
  Serious: Yes (Other)
  Sender: FDA-Public Use
  Company Number: 2015AP007932

PATIENT
  Age: 19 Year
  Sex: Male

DRUGS (5)
  1. FERRIPROX [Suspect]
     Active Substance: DEFERIPRONE
     Indication: PRODUCT USED FOR UNKNOWN INDICATION
  2. CARDENSIEL (BISOPROLOL FUMARATE [Concomitant]
  3. DESFERAL (DEFEROXAMINE MESILATE) [Concomitant]
  4. RAMIPRIL. [Concomitant]
     Active Substance: RAMIPRIL
  5. AERIUS [Concomitant]
     Active Substance: DESLORATADINE

REACTIONS (2)
  - Rhinitis [None]
  - Agranulocytosis [None]

NARRATIVE: CASE EVENT DATE: 20150128
